FAERS Safety Report 14909697 (Version 3)
Quarter: 2018Q3

REPORT INFORMATION
  Report Type: Spontaneous
  Country: ES (occurrence: ES)
  Receive Date: 20180517
  Receipt Date: 20180705
  Transmission Date: 20181010
  Serious: Yes (Death, Hospitalization)
  Sender: FDA-Public Use
  Company Number: ES-JNJFOC-20180521606

PATIENT
  Age: 53 Year
  Sex: Female

DRUGS (6)
  1. PREZISTA [Suspect]
     Active Substance: DARUNAVIR ETHANOLATE
     Indication: PRODUCT USED FOR UNKNOWN INDICATION
     Dosage: 0?1?0, 30 TABLETS
     Route: 048
     Dates: start: 20170420
  2. CEFAZOLINA [Concomitant]
     Active Substance: CEFAZOLIN SODIUM
     Dosage: 2GR/8H
     Route: 042
     Dates: start: 20170523, end: 20170630
  3. NORVIR [Suspect]
     Active Substance: RITONAVIR
     Indication: PRODUCT USED FOR UNKNOWN INDICATION
     Dosage: 0?1?0
     Route: 048
     Dates: start: 20170420
  4. NEURONTIN [Suspect]
     Active Substance: GABAPENTIN
     Indication: PRODUCT USED FOR UNKNOWN INDICATION
     Dosage: 1?1?1; (EVERY 8 HOURS INTERVAL)
     Route: 048
     Dates: start: 20170420
  5. ISENTRESS [Suspect]
     Active Substance: RALTEGRAVIR POTASSIUM
     Indication: PRODUCT USED FOR UNKNOWN INDICATION
     Dosage: 1?0?1, 60 TABLETS
     Route: 048
     Dates: start: 20170420
  6. SERTRALINE [Suspect]
     Active Substance: SERTRALINE HYDROCHLORIDE
     Indication: PRODUCT USED FOR UNKNOWN INDICATION
     Dosage: 30 TABLETS
     Route: 048
     Dates: start: 20170420, end: 20170711

REACTIONS (3)
  - Cerebral infarction [Fatal]
  - Vasculitis cerebral [Fatal]
  - Cerebral vasoconstriction [Fatal]

NARRATIVE: CASE EVENT DATE: 20170702
